FAERS Safety Report 7216373-0 (Version None)
Quarter: 2011Q1

REPORT INFORMATION
  Report Type: 
  Country: None (occurrence: None)
  Receive Date: 20110107
  Receipt Date: 20101215
  Transmission Date: 20110831
  Serious: No
  Sender: FDA-Public Use
  Company Number: US-B.I. PHARMACEUTICALS,INC./RIDGEFIELD-2010-BP-14756BP

PATIENT
  Age: 71 Year
  Sex: Female

DRUGS (11)
  1. PRADAXA [Suspect]
     Indication: ATRIAL FIBRILLATION
     Dosage: 300 MG
     Route: 048
     Dates: start: 20101208
  2. LEVOTHYROXINE SODIUM [Concomitant]
     Indication: HYPOTHYROIDISM
  3. FENOFIBRATE [Concomitant]
     Indication: BLOOD CHOLESTEROL INCREASED
  4. MULTIVITAMIN [Concomitant]
     Indication: SUPPLEMENTATION THERAPY
  5. ZETIA [Concomitant]
     Indication: BLOOD CHOLESTEROL INCREASED
  6. TRAZODONE [Concomitant]
     Indication: SLEEP DISORDER
  7. DIOVAN [Concomitant]
     Indication: HYPERTENSION
  8. COREG [Concomitant]
     Indication: HYPERTENSION
  9. CARDURA [Concomitant]
     Indication: HYPERTENSION
  10. GLIPIZIDE [Concomitant]
     Indication: DIABETES MELLITUS
  11. NIASPAN [Concomitant]
     Indication: BLOOD CHOLESTEROL INCREASED

REACTIONS (3)
  - DYSPHAGIA [None]
  - ERUCTATION [None]
  - DECREASED APPETITE [None]
